FAERS Safety Report 17251458 (Version 8)
Quarter: 2021Q4

REPORT INFORMATION
  Report Type: Spontaneous
  Country: US (occurrence: US)
  Receive Date: 20200109
  Receipt Date: 20211230
  Transmission Date: 20220303
  Serious: Yes (Other)
  Sender: FDA-Public Use
  Company Number: US-PFIZER INC-2018321354

PATIENT
  Age: 35 Year
  Sex: Male
  Weight: 78 kg

DRUGS (11)
  1. INSPRA [Suspect]
     Active Substance: EPLERENONE
     Indication: Diuretic therapy
     Dosage: 350 MG, DAILY (4 TABLETS ONCE DAILY: 200MG AND 3 TABLETS ONCE DAILY: 150MG)
  2. INSPRA [Suspect]
     Active Substance: EPLERENONE
     Indication: Cholangitis sclerosing
     Dosage: 200 MG, 1X/DAY (4 TABLETS (200 MG TOTAL) ONCE DAILY)
     Route: 048
     Dates: start: 20180424
  3. INSPRA [Suspect]
     Active Substance: EPLERENONE
     Dosage: 200 MG, 1X/DAY
     Route: 048
     Dates: start: 20191219
  4. INSPRA [Suspect]
     Active Substance: EPLERENONE
     Dosage: 150 MG, DAILY (3 TABLETS (150 MG) ONCE DAILY)
     Route: 048
     Dates: start: 20200106
  5. INSPRA [Suspect]
     Active Substance: EPLERENONE
     Dosage: 150 MG, DAILY
     Route: 048
  6. INSPRA [Suspect]
     Active Substance: EPLERENONE
     Dosage: 200 MG, 1X/DAY (TAKE 4 TABLETS (200 MG))
     Route: 048
  7. LASIX [Concomitant]
     Active Substance: FUROSEMIDE
     Indication: Diuretic therapy
     Dosage: 60 MG, 1X/DAY
  8. ZOLOFT [Concomitant]
     Active Substance: SERTRALINE HYDROCHLORIDE
     Dosage: 1 DF, 1X/DAY
     Route: 048
  9. RIFAXIMIN [Concomitant]
     Active Substance: RIFAXIMIN
     Indication: Hepatic encephalopathy
     Dosage: UNK
  10. IMURAN [Concomitant]
     Active Substance: AZATHIOPRINE
     Dosage: UNK
  11. LACTULOSE [Concomitant]
     Active Substance: LACTULOSE
     Indication: Colitis ulcerative
     Dosage: UNK

REACTIONS (10)
  - Intestinal haemorrhage [Unknown]
  - Hypokalaemia [Unknown]
  - Hyponatraemia [Unknown]
  - Fatigue [Unknown]
  - Bradyphrenia [Unknown]
  - Memory impairment [Unknown]
  - Time perception altered [Unknown]
  - Diarrhoea [Unknown]
  - Prescribed overdose [Unknown]
  - Intentional product misuse [Unknown]

NARRATIVE: CASE EVENT DATE: 20180906
